APPROVED DRUG PRODUCT: NORMOCARB HF 25
Active Ingredient: MAGNESIUM CHLORIDE; SODIUM BICARBONATE; SODIUM CHLORIDE
Strength: 0.21GM/100ML;2.8GM/100ML;9.07GM/100ML
Dosage Form/Route: SOLUTION;INJECTION
Application: N021910 | Product #001
Applicant: DIALYSIS SUPPLIES INC
Approved: Jul 26, 2006 | RLD: Yes | RS: Yes | Type: RX